FAERS Safety Report 8048084-6 (Version None)
Quarter: 2012Q1

REPORT INFORMATION
  Report Type: 
  Country: None (occurrence: None)
  Receive Date: 20120117
  Receipt Date: 20120109
  Transmission Date: 20120608
  Serious: Yes (Death, Hospitalization, Other)
  Sender: FDA-Public Use
  Company Number: GR-PAR PHARMACEUTICAL, INC-2011SCPR003472

PATIENT

DRUGS (8)
  1. PYRAZINAMIDE [Concomitant]
     Indication: TUBERCULOSIS OF CENTRAL NERVOUS SYSTEM
     Dosage: UNK, UNKNOWN
     Route: 065
  2. LEVOFLOXACIN [Concomitant]
     Indication: TUBERCULOSIS OF CENTRAL NERVOUS SYSTEM
     Dosage: UNK, UNKNOWN
     Route: 065
  3. DEXAMETHASONE [Suspect]
     Dosage: 1 MG/KG/DAY
     Route: 065
  4. DEXAMETHASONE [Suspect]
     Indication: TUBERCULOSIS OF CENTRAL NERVOUS SYSTEM
     Dosage: UNK UNK, UNKNOWN
     Route: 065
  5. STREPTOMYCIN [Concomitant]
     Indication: TUBERCULOSIS OF CENTRAL NERVOUS SYSTEM
     Dosage: UNK, UNKNOWN
     Route: 065
  6. RIFAMPICIN [Concomitant]
     Indication: TUBERCULOSIS OF CENTRAL NERVOUS SYSTEM
     Dosage: UNK, UNKNOWN
     Route: 065
  7. DEXAMETHASONE [Suspect]
     Dosage: 0.8 MG/KG/DAY
     Route: 065
  8. ISONIAZID [Concomitant]
     Indication: TUBERCULOSIS OF CENTRAL NERVOUS SYSTEM
     Dosage: UNK, UNKNOWN
     Route: 065

REACTIONS (6)
  - CARDIAC ARREST [None]
  - DEATH [None]
  - ASPERGILLOSIS [None]
  - CENTRAL NERVOUS SYSTEM INFECTION [None]
  - CNS VENTRICULITIS [None]
  - IMMUNOSUPPRESSION [None]
